FAERS Safety Report 6096168-4 (Version None)
Quarter: 2009Q1

REPORT INFORMATION
  Report Type: 
  Country: None (occurrence: None)
  Receive Date: 20090227
  Receipt Date: 20080919
  Transmission Date: 20090719
  Serious: No
  Sender: FDA-Public Use
  Company Number: A0748408A

PATIENT
  Sex: Female

DRUGS (2)
  1. LAMICTAL [Suspect]
     Indication: BIPOLAR DISORDER
     Dosage: 100MG TWICE PER DAY
     Route: 048
     Dates: start: 20071001
  2. SEROQUEL [Concomitant]

REACTIONS (4)
  - BLOOD CHOLESTEROL INCREASED [None]
  - CONSTIPATION [None]
  - MUSCULAR WEAKNESS [None]
  - VISION BLURRED [None]
